FAERS Safety Report 17455018 (Version 1)
Quarter: 2020Q1

REPORT INFORMATION
  Report Type: Spontaneous
  Country: US (occurrence: US)
  Receive Date: 20200211
  Receipt Date: 20200211
  Transmission Date: 20200409
  Serious: Yes (Hospitalization)
  Sender: FDA-Public Use
  Company Number: None

PATIENT
  Age: 72 Year
  Sex: Female

DRUGS (9)
  1. METHOTREXATE. [Concomitant]
     Active Substance: METHOTREXATE
  2. CHLORTHALID [Concomitant]
     Active Substance: CHLORTHALIDONE
  3. ROSUVASTATIN. [Concomitant]
     Active Substance: ROSUVASTATIN
  4. LISINOPRIL. [Concomitant]
     Active Substance: LISINOPRIL
  5. HYOSCYAMINE. [Concomitant]
     Active Substance: HYOSCYAMINE
  6. CLONAZEPAM. [Concomitant]
     Active Substance: CLONAZEPAM
  7. FOLIC ACID. [Concomitant]
     Active Substance: FOLIC ACID
  8. HUMIRA [Suspect]
     Active Substance: ADALIMUMAB
     Indication: RHEUMATOID ARTHRITIS
     Route: 058
     Dates: start: 20190911
  9. AZITHROMYCIN ANHYDROUS. [Concomitant]
     Active Substance: AZITHROMYCIN ANHYDROUS

REACTIONS (4)
  - Sinusitis [None]
  - Pain [None]
  - Fatigue [None]
  - Vision blurred [None]

NARRATIVE: CASE EVENT DATE: 20200211
